FAERS Safety Report 26157651 (Version 1)
Quarter: 2025Q4

REPORT INFORMATION
  Report Type: Spontaneous
  Country: US (occurrence: None)
  Receive Date: 20251212
  Receipt Date: 20251212
  Transmission Date: 20260118
  Serious: Yes (Hospitalization)
  Sender: FDA-CTU
  Company Number: None

PATIENT
  Age: 81 Year
  Sex: Female

DRUGS (1)
  1. LENALIDOMIDE [Suspect]
     Active Substance: LENALIDOMIDE
     Indication: Plasma cell myeloma
     Dosage: OTHER FREQUENCY : EVERY OTHER DAY FOR 21 DAYS ON AND 7 DAYS OFF;

REACTIONS (4)
  - Atypical pneumonia [None]
  - Gastrointestinal disorder [None]
  - Diverticulitis [None]
  - Clostridium difficile infection [None]
